FAERS Safety Report 20351557 (Version 1)
Quarter: 2022Q1

REPORT INFORMATION
  Report Type: Spontaneous
  Country: US (occurrence: None)
  Receive Date: 20220118
  Receipt Date: 20220118
  Transmission Date: 20220423
  Serious: Yes (Other)
  Sender: FDA-Public Use
  Company Number: None

PATIENT
  Age: 70 Year
  Sex: Female

DRUGS (1)
  1. DORZOLAMIDE [Suspect]
     Active Substance: DORZOLAMIDE
     Indication: Glaucoma
     Dosage: 1 GTT BID OPTHALMIC? ?
     Route: 047
     Dates: start: 20210501, end: 20220101

REACTIONS (2)
  - Dysuria [None]
  - Dysuria [None]

NARRATIVE: CASE EVENT DATE: 20220101
